FAERS Safety Report 13442793 (Version 1)
Quarter: 2017Q2

REPORT INFORMATION
  Report Type: Spontaneous
  Country: US (occurrence: US)
  Receive Date: 20170413
  Receipt Date: 20170413
  Transmission Date: 20170830
  Serious: No
  Sender: FDA-Public Use
  Company Number: None

PATIENT
  Age: 60 Year
  Sex: Female

DRUGS (1)
  1. YUVAFEM [Suspect]
     Active Substance: ESTRADIOL HEMIHYDRATE
     Indication: OESTROGEN THERAPY
     Route: 067
     Dates: start: 201702

REACTIONS (2)
  - Product outer packaging issue [None]
  - Product container issue [None]

NARRATIVE: CASE EVENT DATE: 20170324
